FAERS Safety Report 8727593 (Version 3)
Quarter: 2012Q4

REPORT INFORMATION
  Report Type: 
  Country: DE (occurrence: JP)
  Receive Date: 20120816
  Receipt Date: 20121004
  Transmission Date: 20130627
  Serious: Yes (Hospitalization)
  Sender: FDA-Public Use
  Company Number: JP-FRI-1000027465

PATIENT
  Age: 85 Year
  Sex: Female

DRUGS (20)
  1. MEMANTINE [Suspect]
     Indication: DEMENTIA ALZHEIMER^S TYPE
     Dosage: 5 mg
     Route: 048
  2. MEMANTINE [Suspect]
     Dosage: 10 mg
     Route: 048
  3. MEMANTINE [Suspect]
     Dosage: 15 mg
     Route: 048
     Dates: end: 20110607
  4. MEMANTINE [Suspect]
     Indication: DEMENTIA ALZHEIMER^S TYPE
     Dosage: 20 mg
     Route: 048
     Dates: start: 20110608, end: 20120114
  5. BLOPRESS [Suspect]
     Dates: end: 20120114
  6. ROHYPNOL [Suspect]
     Dates: end: 20120114
  7. SHAKUYAKUKANZOUTOU [Suspect]
     Dates: end: 20120114
  8. UNSPECIFIED INGREDIENT [Suspect]
     Dates: end: 20120114
  9. GASUISAN [Concomitant]
     Dosage: 1 DF
  10. GASUISAN [Concomitant]
     Dosage: 1 DF (after a meal)
  11. ARICEPT [Concomitant]
     Dosage: 5 mg
  12. NITOGIS [Concomitant]
  13. FUROSEMIDE [Concomitant]
  14. OHNES [Concomitant]
  15. SIPSERON [Concomitant]
  16. UBIDECARENONE [Concomitant]
  17. MECOBAMIDE [Concomitant]
  18. RISPERDAL [Concomitant]
  19. RHYTHMY [Concomitant]
  20. APORASNON [Concomitant]

REACTIONS (3)
  - Hypercreatinaemia [Recovered/Resolved]
  - Blood creatine phosphokinase increased [None]
  - Rhabdomyolysis [None]
